FAERS Safety Report 8230632-4 (Version None)
Quarter: 2012Q1

REPORT INFORMATION
  Report Type: 
  Country: None (occurrence: None)
  Receive Date: 20120323
  Receipt Date: 20120315
  Transmission Date: 20120608
  Serious: Yes (Hospitalization)
  Sender: FDA-Public Use
  Company Number: US-JNJFOC-20120302717

PATIENT
  Sex: Male

DRUGS (7)
  1. COGENTIN [Concomitant]
     Route: 048
  2. MIRTAZAPINE [Concomitant]
     Dosage: 30 MG 2 AT HOUR OF SLEEP
     Route: 048
  3. INVEGA SUSTENNA [Suspect]
     Indication: MAJOR DEPRESSION
     Route: 030
     Dates: start: 20120214
  4. RISPERIDONE [Concomitant]
     Dosage: 1 MG 4 AT HOUR OF SLEEP
     Route: 048
  5. INVEGA SUSTENNA [Suspect]
     Indication: BIPOLAR DISORDER
     Route: 030
     Dates: start: 20120214
  6. LAMICTAL [Concomitant]
     Route: 048
  7. XANAX XR [Concomitant]
     Route: 048

REACTIONS (2)
  - CONVULSION [None]
  - CONVERSION DISORDER [None]
